FAERS Safety Report 19804564 (Version 1)
Quarter: 2021Q3

REPORT INFORMATION
  Report Type: Spontaneous
  Country: FR (occurrence: FR)
  Receive Date: 20210908
  Receipt Date: 20210908
  Transmission Date: 20211014
  Serious: Yes (Hospitalization)
  Sender: FDA-Public Use
  Company Number: FR-PFIZER INC-202101121511

PATIENT
  Age: 25 Year
  Sex: Female
  Weight: 86 kg

DRUGS (3)
  1. DALACINE [Suspect]
     Active Substance: CLINDAMYCIN
     Indication: INFECTION
     Dosage: 2400 MG, DAILY
     Route: 042
     Dates: start: 20210519, end: 20210527
  2. LOVENOX [Concomitant]
     Active Substance: ENOXAPARIN SODIUM
     Dosage: UNK
  3. TAZOCILLINE [Suspect]
     Active Substance: PIPERACILLIN SODIUM\TAZOBACTAM SODIUM
     Indication: INFECTION
     Dosage: 4 G, 3X/DAY
     Route: 042
     Dates: start: 20210504, end: 20210527

REACTIONS (4)
  - Rash maculo-papular [Recovered/Resolved]
  - Lip oedema [Recovered/Resolved]
  - Aspartate aminotransferase increased [Unknown]
  - White blood cell count decreased [Unknown]

NARRATIVE: CASE EVENT DATE: 20210526
